FAERS Safety Report 7989634 (Version 3)
Quarter: 2014Q1

REPORT INFORMATION
  Report Type: Spontaneous
  Country: US (occurrence: US)
  Receive Date: 20110614
  Receipt Date: 20140127
  Transmission Date: 20141002
  Serious: Yes (Hospitalization)
  Sender: FDA-Public Use
  Company Number: US-RANBAXY-2011US-45020

PATIENT
  Age: 11 Year
  Sex: Male
  Weight: 35.7 kg

DRUGS (5)
  1. ONDANSETRON [Suspect]
     Indication: ANTIEMETIC SUPPORTIVE CARE
     Dosage: UNK, UNK
     Route: 065
  2. ISOFLURANE [Interacting]
     Indication: GENERAL ANAESTHESIA
     Dosage: UNK
     Route: 055
  3. THIOPENTAL SODIUM [Interacting]
     Indication: PRODUCT USED FOR UNKNOWN INDICATION
     Dosage: UNK
     Route: 065
  4. PROPOFOL [Interacting]
     Indication: PRODUCT USED FOR UNKNOWN INDICATION
     Dosage: UNK
     Route: 065
  5. PANCURONIUM BROMIDE [Interacting]
     Indication: NEUROMUSCULAR BLOCKADE
     Dosage: UNK
     Route: 065

REACTIONS (2)
  - Torsade de pointes [Recovered/Resolved]
  - Drug interaction [Recovered/Resolved]
